FAERS Safety Report 11246235 (Version 1)
Quarter: 2015Q3

REPORT INFORMATION
  Report Type: Spontaneous
  Country: US (occurrence: None)
  Receive Date: 20150706
  Receipt Date: 20150706
  Transmission Date: 20151125
  Serious: No
  Sender: FDA-Public Use
  Company Number: None

PATIENT

DRUGS (2)
  1. ALPRAZOLAM (ALPRAZOLAM) [Suspect]
     Active Substance: ALPRAZOLAM
     Route: 048
  2. PREDNISONE (PREDNISONE) [Suspect]
     Active Substance: PREDNISONE
     Route: 048

REACTIONS (4)
  - Wrong drug administered [None]
  - Hypotonia [None]
  - Drug dispensing error [None]
  - Dizziness [None]

NARRATIVE: CASE EVENT DATE: 2015
